FAERS Safety Report 7727628-5 (Version None)
Quarter: 2011Q3

REPORT INFORMATION
  Report Type: 
  Country: None (occurrence: None)
  Receive Date: 20110902
  Receipt Date: 20110822
  Transmission Date: 20111222
  Serious: Yes (Other)
  Sender: FDA-Public Use
  Company Number: PHHY2009JP25335

PATIENT
  Sex: Female
  Weight: 48 kg

DRUGS (16)
  1. EPIRUBICIN HYDROCHLORIDE [Suspect]
     Indication: BREAST CANCER
     Dosage: 84 MG, UNK
     Route: 042
     Dates: start: 20071211, end: 20080408
  2. ZOMETA [Suspect]
     Indication: BREAST CANCER
     Dosage: 4 MG, EVERY 4 WEEKS
     Route: 042
     Dates: start: 20071212, end: 20091215
  3. LETROZOLE [Suspect]
     Indication: BREAST CANCER
     Dosage: 2.5 MG, QD
     Route: 048
     Dates: start: 20071129
  4. DECADRON [Concomitant]
     Indication: PROPHYLAXIS
     Dosage: 24 MG, UNK
     Route: 041
     Dates: start: 20071211
  5. DEXAMETHASONE SODIUM PHOSPHATE [Concomitant]
     Dosage: 6.6 MG, UNK
     Route: 042
     Dates: start: 20100302, end: 20100518
  6. DECADRON [Concomitant]
     Dosage: 8 MG, UNK
     Route: 041
  7. PACLITAXEL [Suspect]
     Indication: BREAST CANCER
     Dosage: 80 MG, UNK
     Route: 042
     Dates: end: 20081212
  8. CYCLOPHOSPHAMIDE [Suspect]
     Indication: BREAST CANCER
     Dosage: 500 MG, UNK
     Route: 042
     Dates: start: 20071211, end: 20080408
  9. NEUTROGIN [Concomitant]
     Dosage: 50 UG, UNK
     Route: 030
     Dates: start: 20071225, end: 20080328
  10. FAMOTIDINE [Concomitant]
     Indication: PROPHYLAXIS
     Dosage: 20 MG, UNK
     Route: 041
     Dates: start: 20080513
  11. FAMOTIDINE [Concomitant]
     Dosage: 20 MG, UNK
     Route: 042
  12. FAMOTIDINE [Concomitant]
     Dosage: 20 MG, UNK
     Route: 042
     Dates: end: 20100518
  13. PACLITAXEL [Suspect]
     Dosage: 80 MG, UNK
     Route: 042
     Dates: start: 20090106, end: 20100518
  14. RAMELTEON [Concomitant]
     Dosage: 0.3 MG, UNK
     Route: 041
     Dates: start: 20071211, end: 20080408
  15. DECADRON [Concomitant]
     Dosage: 8 MG, UNK
     Route: 042
     Dates: end: 20100216
  16. RESTAMIN [Concomitant]
     Indication: PROPHYLAXIS
     Dosage: 30 MG, UNK
     Route: 048
     Dates: start: 20080513

REACTIONS (5)
  - HAEMORRHAGE [None]
  - PAIN IN JAW [None]
  - SWELLING [None]
  - WHITE BLOOD CELL COUNT DECREASED [None]
  - OSTEOMYELITIS [None]
